FAERS Safety Report 5021647-8 (Version None)
Quarter: 2006Q2

REPORT INFORMATION
  Report Type: 
  Country: None (occurrence: None)
  Receive Date: 20060608
  Receipt Date: 20060605
  Transmission Date: 20061013
  Serious: Yes (Hospitalization, Other)
  Sender: FDA-Public Use
  Company Number: US-MERCK-0606USA00770

PATIENT
  Age: 46 Year
  Sex: Female

DRUGS (5)
  1. ZETIA [Suspect]
     Indication: HYPERCHOLESTEROLAEMIA
     Route: 048
     Dates: end: 20060501
  2. DILTIAZEM MALATE [Concomitant]
     Route: 065
  3. WARFARIN [Concomitant]
     Route: 065
  4. NORTRIPTYLINE [Concomitant]
     Route: 065
  5. ZOCOR [Concomitant]
     Route: 048
     Dates: end: 20060101

REACTIONS (1)
  - ATRIAL FIBRILLATION [None]
